FAERS Safety Report 18835965 (Version 1)
Quarter: 2021Q1

REPORT INFORMATION
  Report Type: Spontaneous
  Country: US (occurrence: US)
  Receive Date: 20210203
  Receipt Date: 20210203
  Transmission Date: 20210419
  Serious: Yes (Other)
  Sender: FDA-Public Use
  Company Number: None

PATIENT
  Age: 59 Year
  Sex: Female

DRUGS (10)
  1. CALCIUM [Concomitant]
     Active Substance: CALCIUM
  2. PREGABALIN. [Concomitant]
     Active Substance: PREGABALIN
  3. PROLIA [Suspect]
     Active Substance: DENOSUMAB
     Indication: OSTEOPOROSIS
     Dosage: ?          OTHER FREQUENCY:Q 6 MONTHS;?
     Route: 058
  4. ASPIRIN. [Concomitant]
     Active Substance: ASPIRIN
  5. PROTONIX [Concomitant]
     Active Substance: PANTOPRAZOLE SODIUM
  6. COENZYME Q10 [Concomitant]
     Active Substance: DIETARY SUPPLEMENT\UBIDECARENONE
  7. VITAMIN D [Concomitant]
     Active Substance: VITAMIN D NOS
  8. DILANTIN [Concomitant]
     Active Substance: PHENYTOIN
  9. LEVETIRACETAM. [Concomitant]
     Active Substance: LEVETIRACETAM
  10. MAGNESIUM [Concomitant]
     Active Substance: MAGNESIUM

REACTIONS (2)
  - Arthralgia [None]
  - Pain in extremity [None]
